FAERS Safety Report 5412416-5 (Version None)
Quarter: 2007Q3

REPORT INFORMATION
  Report Type: 
  Country: None (occurrence: None)
  Receive Date: 20070809
  Receipt Date: 20070803
  Transmission Date: 20080115
  Serious: Yes (Death, Hospitalization, Other)
  Sender: FDA-Public Use
  Company Number: 163-21880-07060199

PATIENT
  Age: 86 Year
  Sex: Male

DRUGS (13)
  1. REVLIMID [Suspect]
     Indication: MULTIPLE MYELOMA
     Dosage: 15 MG, DAILY X 21 DAYS, ORAL
     Route: 048
     Dates: start: 20070510, end: 20070523
  2. EFFEXOR [Concomitant]
  3. OSCAL (CALCIUM CARBONATE) (TABLETS) [Concomitant]
  4. SURFAK (DOCUSATE CALCIUM) [Concomitant]
  5. NEPHROVITE (NEPHRO-VITE RX) (TABLETS) [Concomitant]
  6. PACERONE (AMIODARONE HYDROCHLORIDE) (100 MILLIGRAM, TABLETS) [Concomitant]
  7. SODIUM BICARBONATE IN PLASTIC CONTAINER [Concomitant]
  8. METROCLOPRAM (METOCLOPRAMIDE) [Concomitant]
  9. ZOCOR [Concomitant]
  10. ATIVAN [Concomitant]
  11. PRILOSEC [Concomitant]
  12. DARVOCET N (PROPACET) (100 MILLIGRAM, TABLETS) [Concomitant]
  13. AMBIEN CR [Concomitant]

REACTIONS (10)
  - BONE MARROW FAILURE [None]
  - CANDIDA PNEUMONIA [None]
  - CARDIAC FAILURE CONGESTIVE [None]
  - GASTROINTESTINAL HAEMORRHAGE [None]
  - LEUKOPENIA [None]
  - MULTIPLE MYELOMA [None]
  - NEUTROPENIA [None]
  - PLATELET COUNT DECREASED [None]
  - PLEURAL EFFUSION [None]
  - RENAL FAILURE ACUTE [None]
